FAERS Safety Report 25771755 (Version 2)
Quarter: 2025Q3

REPORT INFORMATION
  Report Type: Spontaneous
  Country: GB (occurrence: GB)
  Receive Date: 20250908
  Receipt Date: 20250910
  Transmission Date: 20251021
  Serious: Yes (Other)
  Sender: TEVA
  Company Number: GB-MHRA-EMIS-8683-b7895e47-431b-470f-98cc-a041b5a08106

PATIENT
  Age: 21 Year
  Sex: Male
  Weight: 72 kg

DRUGS (3)
  1. LAMOTRIGINE [Suspect]
     Active Substance: LAMOTRIGINE
     Indication: Product used for unknown indication
     Route: 065
     Dates: start: 20250407, end: 20250425
  2. VORTIOXETINE [Concomitant]
     Active Substance: VORTIOXETINE
     Indication: Product used for unknown indication
     Dosage: AS DIRECTED BY PSYCHIATRY
     Dates: start: 20250407
  3. LURASIDONE [Concomitant]
     Active Substance: LURASIDONE
     Indication: Product used for unknown indication
     Dosage: DAILY DOSAGE: 18.5MG
     Dates: start: 20250508

REACTIONS (4)
  - Drug reaction with eosinophilia and systemic symptoms [Recovered/Resolved]
  - Pyrexia [Recovered/Resolved]
  - Rash [Recovered/Resolved]
  - Herpes simplex [Recovered/Resolved]
